FAERS Safety Report 25717738 (Version 2)
Quarter: 2025Q4

REPORT INFORMATION
  Report Type: Spontaneous
  Country: JP (occurrence: JP)
  Receive Date: 20250822
  Receipt Date: 20251010
  Transmission Date: 20260118
  Serious: Yes (Hospitalization, Other)
  Sender: MERCK SHARP & DOHME LLC
  Company Number: JP-009507513-2322260

PATIENT
  Age: 57 Year
  Sex: Female

DRUGS (1)
  1. KEYTRUDA [Suspect]
     Active Substance: PEMBROLIZUMAB
     Indication: Cervix carcinoma
     Dosage: 200MG ONCE EVERY 3 WEEKS
     Route: 042
     Dates: start: 20250618

REACTIONS (6)
  - Duodenal ulcer [Unknown]
  - Duodenal perforation [Recovered/Resolved]
  - Movement disorder [Unknown]
  - Shock haemorrhagic [Recovered/Resolved]
  - Anal incontinence [Unknown]
  - Malignant neoplasm progression [Unknown]

NARRATIVE: CASE EVENT DATE: 20250704
